FAERS Safety Report 7493042-3 (Version None)
Quarter: 2011Q2

REPORT INFORMATION
  Report Type: 
  Country: None (occurrence: None)
  Receive Date: 20110520
  Receipt Date: 20110517
  Transmission Date: 20111010
  Serious: No
  Sender: FDA-Public Use
  Company Number: US-PFIZER INC-2011106941

PATIENT
  Sex: Female
  Weight: 72.562 kg

DRUGS (8)
  1. MILK THISTLE [Concomitant]
     Dosage: 240 MG, UNK
  2. FOLIC ACID [Concomitant]
     Dosage: 400 UG, UNK
  3. MULTI-VITAMINS [Concomitant]
     Dosage: UNK
  4. VITAMIN B-12 [Concomitant]
     Dosage: 500 UG, 2X/DAY
  5. DILANTIN [Concomitant]
     Indication: CONVULSION PROPHYLAXIS
     Dosage: UNK
     Route: 048
     Dates: start: 19650101
  6. TOPROL-XL [Concomitant]
     Indication: HYPERTENSION
     Dosage: 500 MG, UNK
     Route: 048
  7. FISH OIL [Concomitant]
     Dosage: 3000 IU, 1X/DAY
  8. LIPITOR [Suspect]
     Indication: BLOOD CHOLESTEROL ABNORMAL
     Dosage: 20 MG, UNK
     Route: 048
     Dates: end: 20100101

REACTIONS (2)
  - MYALGIA [None]
  - PAIN IN EXTREMITY [None]
